FAERS Safety Report 11139201 (Version 2)
Quarter: 2015Q4

REPORT INFORMATION
  Report Type: Spontaneous
  Country: FR (occurrence: FR)
  Receive Date: 20150527
  Receipt Date: 20151022
  Transmission Date: 20160304
  Serious: Yes (Hospitalization)
  Sender: FDA-Public Use
  Company Number: FR-ASTRAZENECA-2015SE51134

PATIENT
  Age: 84 Year
  Sex: Female

DRUGS (8)
  1. TEMERIT [Concomitant]
     Active Substance: NEBIVOLOL
  2. LERCAN [Concomitant]
     Active Substance: LERCANIDIPINE
  3. XEROQUEL [Suspect]
     Active Substance: QUETIAPINE FUMARATE
     Route: 048
     Dates: end: 201408
  4. LYSANXIA [Concomitant]
     Active Substance: PRAZEPAM
     Dosage: 15MG/ML
  5. LEVOTHYROX [Concomitant]
     Active Substance: LEVOTHYROXINE
  6. PLAVIX [Concomitant]
     Active Substance: CLOPIDOGREL BISULFATE
  7. FORLAX [Concomitant]
     Active Substance: POLYETHYLENE GLYCOL 4000
  8. EXELON [Concomitant]
     Active Substance: RIVASTIGMINE TARTRATE
     Dosage: STRENGTH: 4.6MG/24H

REACTIONS (5)
  - Hypothermia [Recovered/Resolved]
  - Off label use [Recovered/Resolved]
  - Aphasia [Unknown]
  - Tonic clonic movements [Recovered/Resolved]
  - Dementia [Unknown]
